FAERS Safety Report 7354901-5 (Version None)
Quarter: 2011Q1

REPORT INFORMATION
  Report Type: 
  Country: None (occurrence: None)
  Receive Date: 20110307
  Receipt Date: 20110224
  Transmission Date: 20110831
  Serious: Yes (Death)
  Sender: FDA-Public Use
  Company Number: 2007-02186

PATIENT
  Age: 61 Year
  Sex: Female
  Weight: 53 kg

DRUGS (11)
  1. ALLOPURINOL [Concomitant]
  2. VELCADE [Suspect]
     Indication: MULTIPLE MYELOMA
     Dosage: 1.10 MG, INTRAVENOUS
     Route: 042
     Dates: start: 20070223, end: 20070305
  3. DEXAMETHASONE SODIUM PHOSPHATE [Concomitant]
  4. ASPIRIN [Concomitant]
  5. EPOGEN [Concomitant]
  6. MEROPENEM [Concomitant]
  7. FUNGUARD (MICAFUNGIN SODIUM) [Concomitant]
  8. HYDROCORTISONE SODIUM SUCCINATE [Concomitant]
  9. KYTRIL [Concomitant]
  10. MAXIPIME [Concomitant]
  11. LASIX [Concomitant]

REACTIONS (3)
  - MULTIPLE MYELOMA [None]
  - HEPATITIS [None]
  - NEOPLASM MALIGNANT [None]
